FAERS Safety Report 12977367 (Version 4)
Quarter: 2016Q4

REPORT INFORMATION
  Report Type: Spontaneous
  Country: BH (occurrence: BH)
  Receive Date: 20161128
  Receipt Date: 20161229
  Transmission Date: 20170207
  Serious: Yes (Death, Life-Threatening, Hospitalization, Disabling, Other)
  Sender: FDA-Public Use
  Company Number: BH-APOTEX-2016AP015204

PATIENT
  Age: 45 Year
  Sex: Female
  Weight: 93 kg

DRUGS (1)
  1. PAXIL CR [Suspect]
     Active Substance: PAROXETINE HYDROCHLORIDE
     Indication: PHOBIA
     Dosage: AT LEAST 350 MG DAILY TOTAL
     Route: 048
     Dates: start: 201611, end: 201611

REACTIONS (7)
  - Multiple organ dysfunction syndrome [Fatal]
  - Pyrexia [Unknown]
  - Overdose [Fatal]
  - Confusional state [Unknown]
  - Jaundice [Unknown]
  - Muscle rigidity [Unknown]
  - Hepatitis toxic [Unknown]

NARRATIVE: CASE EVENT DATE: 201611
